FAERS Safety Report 21013618 (Version 1)
Quarter: 2022Q2

REPORT INFORMATION
  Report Type: Spontaneous
  Country: US (occurrence: US)
  Receive Date: 20220627
  Receipt Date: 20220627
  Transmission Date: 20220721
  Serious: No
  Sender: FDA-Public Use
  Company Number: US-SA-SAC20220621002085

PATIENT
  Age: 69 Year
  Sex: Female

DRUGS (14)
  1. DUPIXENT [Suspect]
     Active Substance: DUPILUMAB
     Indication: Dermatitis atopic
     Dosage: 300 MG, QOW
     Route: 058
     Dates: start: 202110
  2. OPSUMIT [Concomitant]
     Active Substance: MACITENTAN
  3. PANTOPRAZOLE SODIUM [Concomitant]
     Active Substance: PANTOPRAZOLE SODIUM
  4. TADALAFIL [Concomitant]
     Active Substance: TADALAFIL
  5. TORSEMIDE [Concomitant]
     Active Substance: TORSEMIDE
  6. XARELTO [Concomitant]
     Active Substance: RIVAROXABAN
  7. MINERALS\VITAMINS [Concomitant]
     Active Substance: MINERALS\VITAMINS
  8. BRILINTA [Concomitant]
     Active Substance: TICAGRELOR
  9. ROSUVASTATIN CALCIUM [Concomitant]
     Active Substance: ROSUVASTATIN CALCIUM
  10. KLONOPIN [Concomitant]
     Active Substance: CLONAZEPAM
  11. EFFEXOR [Concomitant]
     Active Substance: VENLAFAXINE HYDROCHLORIDE
  12. MIRTAZAPINE [Concomitant]
     Active Substance: MIRTAZAPINE
  13. PREDNISONE [Concomitant]
     Active Substance: PREDNISONE
  14. MODERNA COVID-19 VACCINE [Concomitant]
     Active Substance: ELASOMERAN

REACTIONS (1)
  - Oxygen therapy [Unknown]

NARRATIVE: CASE EVENT DATE: 20220614
